FAERS Safety Report 6750954-3 (Version None)
Quarter: 2010Q2

REPORT INFORMATION
  Report Type: 
  Country: None (occurrence: None)
  Receive Date: 20100602
  Receipt Date: 20100525
  Transmission Date: 20101027
  Serious: Yes (Death)
  Sender: FDA-Public Use
  Company Number: PH-TYCO HEALTHCARE/MALLINCKRODT-T201001294

PATIENT

DRUGS (2)
  1. OPTIRAY 350 [Suspect]
     Indication: UROGRAM
     Dosage: 60 ML, SINGLE
     Route: 042
  2. OPTIRAY 350 [Suspect]
     Indication: CYSTOGRAM
     Dosage: 30 ML, SINGLE
     Route: 042

REACTIONS (1)
  - DEATH [None]
